FAERS Safety Report 9267944 (Version 2)
Quarter: 2014Q1

REPORT INFORMATION
  Report Type: Report from Study
  Country: US (occurrence: US)
  Receive Date: 20130502
  Receipt Date: 20140221
  Transmission Date: 20141002
  Serious: Yes (Other)
  Sender: FDA-Public Use
  Company Number: US-ALEXION-A201201154

PATIENT
  Sex: Male

DRUGS (2)
  1. SOLIRIS [Suspect]
     Indication: PAROXYSMAL NOCTURNAL HAEMOGLOBINURIA
     Dosage: UNK
     Route: 042
  2. DESFERRIOXAMINE [Concomitant]
     Dosage: UNK

REACTIONS (4)
  - Transfusion [Unknown]
  - Blood iron abnormal [Unknown]
  - Fatigue [Not Recovered/Not Resolved]
  - Epistaxis [Unknown]
